FAERS Safety Report 5126807-3 (Version None)
Quarter: 2006Q4

REPORT INFORMATION
  Report Type: 
  Country: None (occurrence: None)
  Receive Date: 20061011
  Receipt Date: 20061011
  Transmission Date: 20070319
  Serious: Yes (Life-Threatening)
  Sender: FDA-Public Use
  Company Number: None

PATIENT
  Sex: Male
  Weight: 98.4306 kg

DRUGS (13)
  1. CETUXIMAB     100MG     IMCLONE SYSTEMS,  BRISTOL MYER [Suspect]
     Indication: CHEMOTHERAPY
     Dosage: 880 MG   1ST DOSE   IV DRIP
     Route: 041
     Dates: start: 20061009, end: 20061009
  2. CETUXIMAB     100MG     IMCLONE SYSTEMS,  BRISTOL MYER [Suspect]
     Indication: LUNG NEOPLASM MALIGNANT
     Dosage: 880 MG   1ST DOSE   IV DRIP
     Route: 041
     Dates: start: 20061009, end: 20061009
  3. CLARINEX [Concomitant]
  4. VITAMIN B6 [Concomitant]
  5. FLOMAX [Concomitant]
  6. OXYCODONE HCL [Concomitant]
  7. DEXAMETHASONE TAB [Concomitant]
  8. CENTRUM [Concomitant]
  9. PEPCID [Concomitant]
  10. NONI SUPPLEMENT [Concomitant]
  11. HUMULIN 70/30 [Concomitant]
  12. LYRICA [Concomitant]
  13. SENEKOT S [Concomitant]

REACTIONS (2)
  - DRUG HYPERSENSITIVITY [None]
  - INFUSION RELATED REACTION [None]
